FAERS Safety Report 10724132 (Version 2)
Quarter: 2015Q1

REPORT INFORMATION
  Report Type: Spontaneous
  Country: AR (occurrence: AR)
  Receive Date: 20150120
  Receipt Date: 20150122
  Transmission Date: 20150721
  Serious: Yes (Hospitalization)
  Sender: FDA-Public Use
  Company Number: AR-PFIZER INC-2015018886

PATIENT
  Age: 52 Year
  Sex: Female

DRUGS (1)
  1. INLYTA [Suspect]
     Active Substance: AXITINIB
     Indication: RENAL CANCER
     Dosage: 3 MG, 2X/DAY
     Dates: start: 20140815

REACTIONS (6)
  - Diarrhoea [Recovering/Resolving]
  - Anaemia [Unknown]
  - Pyrexia [Recovered/Resolved]
  - Dehydration [Recovered/Resolved]
  - Muscle spasms [Not Recovered/Not Resolved]
  - Blood pressure abnormal [Recovered/Resolved]

NARRATIVE: CASE EVENT DATE: 201412
